FAERS Safety Report 17978901 (Version 1)
Quarter: 2020Q3

REPORT INFORMATION
  Report Type: Spontaneous
  Country: US (occurrence: US)
  Receive Date: 20200703
  Receipt Date: 20200703
  Transmission Date: 20201103
  Serious: Yes (Other)
  Sender: FDA-Public Use
  Company Number: US-PFIZER INC-2020254591

PATIENT
  Age: 49 Year
  Sex: Female

DRUGS (1)
  1. LYRICA [Suspect]
     Active Substance: PREGABALIN
     Indication: AUTONOMIC NEUROPATHY
     Dosage: 75 MG, 3X/DAY
     Route: 048

REACTIONS (8)
  - Hyperlipidaemia [Unknown]
  - Deep vein thrombosis [Unknown]
  - Attention deficit hyperactivity disorder [Unknown]
  - Neuralgia [Unknown]
  - Muscle spasms [Unknown]
  - Bipolar I disorder [Unknown]
  - Product use in unapproved indication [Unknown]
  - Off label use [Unknown]
